FAERS Safety Report 21410238 (Version 1)
Quarter: 2022Q4

REPORT INFORMATION
  Report Type: Spontaneous
  Country: US (occurrence: US)
  Receive Date: 20221005
  Receipt Date: 20221005
  Transmission Date: 20230112
  Serious: No
  Sender: FDA-Public Use
  Company Number: US-ALLERGAN-2226625US

PATIENT
  Sex: Female

DRUGS (2)
  1. UBRELVY [Suspect]
     Active Substance: UBROGEPANT
     Indication: Migraine
     Dosage: 50 MG
     Route: 048
  2. UBRELVY [Suspect]
     Active Substance: UBROGEPANT
     Dosage: 100 MG

REACTIONS (2)
  - Euphoric mood [Recovered/Resolved]
  - Therapeutic response decreased [Unknown]
